FAERS Safety Report 7672306-4 (Version None)
Quarter: 2011Q3

REPORT INFORMATION
  Report Type: 
  Country: None (occurrence: None)
  Receive Date: 20110803
  Receipt Date: 20110726
  Transmission Date: 20111222
  Serious: Yes (Other)
  Sender: FDA-Public Use
  Company Number: A0938346A

PATIENT
  Age: 56 Year
  Sex: Male

DRUGS (1)
  1. UREA PEROXIDE [Suspect]
     Dates: start: 20110725

REACTIONS (1)
  - OTORRHOEA [None]
